FAERS Safety Report 11780922 (Version 2)
Quarter: 2015Q4

REPORT INFORMATION
  Report Type: Spontaneous
  Country: BR (occurrence: BR)
  Receive Date: 20151126
  Receipt Date: 20151218
  Transmission Date: 20160305
  Serious: Yes (Hospitalization, Other)
  Sender: FDA-Public Use
  Company Number: BR-PFIZER INC-2015393101

PATIENT
  Age: 52 Year
  Sex: Female
  Weight: 65 kg

DRUGS (4)
  1. LYRICA [Suspect]
     Active Substance: PREGABALIN
     Indication: NERVOUS SYSTEM DISORDER
     Dosage: 150 MG, DAILY
     Route: 048
     Dates: start: 2014, end: 2014
  2. DORENE [Concomitant]
     Dosage: UNK
     Dates: start: 2014, end: 2014
  3. LYRICA [Suspect]
     Active Substance: PREGABALIN
     Indication: PAIN
     Dosage: 75 MG, DAILY
     Route: 048
     Dates: start: 201409, end: 2014
  4. LYRICA [Suspect]
     Active Substance: PREGABALIN
     Dosage: 150 MG, DAILY
     Route: 048
     Dates: start: 201510

REACTIONS (8)
  - Device failure [Recovered/Resolved]
  - Gait disturbance [Unknown]
  - Postoperative wound infection [Recovered/Resolved]
  - Arthropathy [Recovered/Resolved]
  - Hyperaesthesia [Recovered/Resolved]
  - Tendon rupture [Recovered/Resolved]
  - Drug effect incomplete [Not Recovered/Not Resolved]
  - Impaired healing [Recovered/Resolved]

NARRATIVE: CASE EVENT DATE: 2014
